FAERS Safety Report 9952873 (Version 1)
Quarter: 2014Q1

REPORT INFORMATION
  Report Type: Spontaneous
  Country: ES (occurrence: ES)
  Receive Date: 20140304
  Receipt Date: 20140304
  Transmission Date: 20141002
  Serious: Yes (Hospitalization)
  Sender: FDA-Public Use
  Company Number: ES-CELGENEUS-144-21880-14022605

PATIENT
  Age: 52 Year
  Sex: Female

DRUGS (1)
  1. REVLIMID [Suspect]
     Indication: PLASMA CELL MYELOMA
     Route: 048
     Dates: start: 201103

REACTIONS (4)
  - Pulmonary eosinophilia [Recovering/Resolving]
  - Pleural effusion [Recovering/Resolving]
  - Pleuritic pain [Recovering/Resolving]
  - Pyrexia [Recovering/Resolving]
